FAERS Safety Report 9177043 (Version 1)
Quarter: 2013Q1

REPORT INFORMATION
  Report Type: Spontaneous
  Country: FR (occurrence: FR)
  Receive Date: 20130321
  Receipt Date: 20130321
  Transmission Date: 20140127
  Serious: Yes (Hospitalization, Other)
  Sender: FDA-Public Use
  Company Number: FR-JNJFOC-20040703987

PATIENT
  Age: 5 Year
  Sex: Female

DRUGS (1)
  1. CHILDREN^S IBUPROFEN [Suspect]
     Indication: PRODUCT USED FOR UNKNOWN INDICATION
     Dosage: 28 MG/KG PER DAY
     Route: 048

REACTIONS (1)
  - Renal failure acute [Recovered/Resolved]
